FAERS Safety Report 4367245-0 (Version None)
Quarter: 2004Q2

REPORT INFORMATION
  Report Type: 
  Country: None (occurrence: None)
  Receive Date: 20040524
  Receipt Date: 20040506
  Transmission Date: 20050107
  Serious: Yes (Other)
  Sender: FDA-Public Use
  Company Number: 1605

PATIENT
  Age: 40 Year
  Sex: Male

DRUGS (4)
  1. AVINZA [Suspect]
     Indication: PAIN
     Dosage: 90 MG QD PO
     Route: 048
     Dates: start: 20040415, end: 20040101
  2. AVINZA [Suspect]
     Indication: PAIN
     Dosage: 120 MG QD PO
     Route: 048
     Dates: start: 20040101, end: 20040101
  3. AVINZA [Suspect]
     Indication: PAIN
     Dosage: 240 MG QD PO
     Route: 048
     Dates: start: 20040101, end: 20040101
  4. OXYCODONE AND ACETAMINOPHEN [Concomitant]

REACTIONS (6)
  - CEREBROVASCULAR ACCIDENT [None]
  - MUSCLE SPASMS [None]
  - MYOCARDIAL INFARCTION [None]
  - PAIN [None]
  - RESPIRATORY DEPRESSION [None]
  - SOMNOLENCE [None]
